FAERS Safety Report 4450873-1 (Version None)
Quarter: 2004Q3

REPORT INFORMATION
  Report Type: 
  Country: None (occurrence: None)
  Receive Date: 20040916
  Receipt Date: 20011016
  Transmission Date: 20050211
  Serious: Yes (Other)
  Sender: FDA-Public Use
  Company Number: US-BRISTOL-MYERS SQUIBB COMPANY-11534401

PATIENT
  Age: 31 Year
  Sex: Female

DRUGS (14)
  1. STADOL [Suspect]
     Route: 045
     Dates: start: 19980222, end: 20010201
  2. STADOL [Suspect]
     Dosage: ROUTE: IM AND IV
     Route: 030
  3. PREDNISONE [Concomitant]
  4. DEPAKOTE [Concomitant]
  5. CLONAZEPAM [Concomitant]
  6. HYDROCODONE + ACETAMINOPHEN [Concomitant]
  7. FUROSEMIDE [Concomitant]
  8. ULTRAM [Concomitant]
  9. CYCLOBENZAPRINE HCL [Concomitant]
  10. OXYCONTIN [Concomitant]
  11. PROMETHAZINE [Concomitant]
  12. BUTALBITAL + CAFFEINE + ACETAMINOPHEN [Concomitant]
  13. OXYCODONE HCL [Concomitant]
  14. DIAZEPAM [Concomitant]

REACTIONS (2)
  - DEPENDENCE [None]
  - DRUG WITHDRAWAL SYNDROME [None]
